FAERS Safety Report 7013613-8 (Version None)
Quarter: 2010Q3

REPORT INFORMATION
  Report Type: 
  Country: None (occurrence: None)
  Receive Date: 20100924
  Receipt Date: 20100914
  Transmission Date: 20110219
  Serious: Yes (Hospitalization)
  Sender: FDA-Public Use
  Company Number: GB-ABBOTT-10P-167-0671054-00

PATIENT
  Weight: 3 kg

DRUGS (3)
  1. NORVIR [Suspect]
     Indication: DRUG EXPOSURE DURING PREGNANCY
     Route: 064
  2. REYATAZ [Suspect]
     Indication: DRUG EXPOSURE DURING PREGNANCY
     Route: 064
  3. TRUVADA [Suspect]
     Indication: DRUG EXPOSURE DURING PREGNANCY
     Route: 064

REACTIONS (3)
  - BLOOD BILIRUBIN INCREASED [None]
  - CONJUNCTIVITIS VIRAL [None]
  - DRUG EXPOSURE DURING PREGNANCY [None]
